FAERS Safety Report 13635582 (Version 3)
Quarter: 2017Q3

REPORT INFORMATION
  Report Type: Report from Study
  Country: US (occurrence: US)
  Receive Date: 20170609
  Receipt Date: 20170708
  Transmission Date: 20171127
  Serious: No
  Sender: FDA-Public Use
  Company Number: US-AMGEN-USASP2017086353

PATIENT
  Age: 46 Year
  Sex: Male

DRUGS (6)
  1. MOTRIN [Concomitant]
     Active Substance: IBUPROFEN
     Indication: PAIN
     Dosage: 800 MG,(1 OR 2 PILLS PER DAY)
     Route: 048
  2. MOTRIN [Concomitant]
     Active Substance: IBUPROFEN
     Indication: INJECTION SITE MASS
  3. ENBREL [Suspect]
     Active Substance: ETANERCEPT
     Indication: RHEUMATOID ARTHRITIS
     Dosage: 50 MG, QWK
     Route: 065
     Dates: start: 20170603
  4. MOTRIN [Concomitant]
     Active Substance: IBUPROFEN
     Indication: INJECTION SITE PAIN
  5. MOTRIN [Concomitant]
     Active Substance: IBUPROFEN
     Indication: INJECTION SITE SWELLING
  6. MOTRIN [Concomitant]
     Active Substance: IBUPROFEN
     Indication: INJECTION SITE PRURITUS

REACTIONS (7)
  - Injection site pruritus [Not Recovered/Not Resolved]
  - Sinusitis [Unknown]
  - Injection site erythema [Recovered/Resolved]
  - Injection site pain [Not Recovered/Not Resolved]
  - Injection site swelling [Not Recovered/Not Resolved]
  - Injection site mass [Not Recovered/Not Resolved]
  - Injection site irritation [Not Recovered/Not Resolved]

NARRATIVE: CASE EVENT DATE: 20170603
